FAERS Safety Report 4725027-1 (Version None)
Quarter: 2005Q3

REPORT INFORMATION
  Report Type: 
  Country: None (occurrence: None)
  Receive Date: 20050722
  Receipt Date: 20050711
  Transmission Date: 20060218
  Serious: Yes (Other)
  Sender: FDA-Public Use
  Company Number: 2005099544

PATIENT
  Age: 52 Year
  Sex: Female
  Weight: 81.6475 kg

DRUGS (1)
  1. ESTRING [Suspect]
     Indication: ILL-DEFINED DISORDER
     Dosage: VAGINAL
     Route: 067
     Dates: start: 20050301, end: 20050709

REACTIONS (2)
  - ADVERSE EVENT [None]
  - COMPLICATION OF DEVICE REMOVAL [None]
